FAERS Safety Report 12662852 (Version 1)
Quarter: 2016Q3

REPORT INFORMATION
  Report Type: Spontaneous
  Country: US (occurrence: None)
  Receive Date: 20160817
  Receipt Date: 20160817
  Transmission Date: 20161109
  Serious: Yes (Other)
  Sender: FDA-Public Use
  Company Number: None

PATIENT
  Age: 79 Year
  Sex: Female
  Weight: 76.66 kg

DRUGS (12)
  1. FUROSEMIDE. [Concomitant]
     Active Substance: FUROSEMIDE
  2. VITAMIN D [Concomitant]
     Active Substance: CHOLECALCIFEROL
  3. STOOL SOFTNER [Concomitant]
     Active Substance: DOCUSATE SODIUM
  4. FISH OIL [Concomitant]
     Active Substance: FISH OIL
  5. ALPHAGAN P [Concomitant]
     Active Substance: BRIMONIDINE TARTRATE
  6. SUPER B COMPLEX [Concomitant]
     Active Substance: CYANOCOBALAMIN\DEXPANTHENOL\NIACINAMIDE\PYRIDOXINE HYDROCHLORIDE\RIBOFLAVIN 5^-PHOSPHATE SODIUM\THIAMINE HYDROCHLORIDE\VITAMIN B COMPLEX
  7. CANE [Concomitant]
  8. OMEGA-3 ACIDS [Concomitant]
     Active Substance: OMEGA-3 FATTY ACIDS
  9. TIMOLOL MALEATE. [Concomitant]
     Active Substance: TIMOLOL MALEATE
  10. DOROZOLAMIDE HCL/TIMOLOL MALATE [Concomitant]
  11. DILTIAZEM. [Concomitant]
     Active Substance: DILTIAZEM
  12. PROLIA [Suspect]
     Active Substance: DENOSUMAB
     Indication: PRODUCT USED FOR UNKNOWN INDICATION
     Dosage: ONE INJECTION EVERY 6 MONTHS, INJECTION, UNDER ARM
     Dates: start: 20160325, end: 20160325

REACTIONS (15)
  - Blood pressure increased [None]
  - Faeces discoloured [None]
  - Abnormal faeces [None]
  - Head injury [None]
  - Bone pain [None]
  - Pruritus [None]
  - Dizziness [None]
  - Swelling face [None]
  - Abdominal pain upper [None]
  - Musculoskeletal disorder [None]
  - Headache [None]
  - Dermatitis [None]
  - Clavicle fracture [None]
  - Fall [None]
  - Loss of consciousness [None]
